FAERS Safety Report 17351159 (Version 1)
Quarter: 2020Q1

REPORT INFORMATION
  Report Type: Report from Study
  Country: BE (occurrence: BE)
  Receive Date: 20200130
  Receipt Date: 20200130
  Transmission Date: 20200409
  Serious: Yes (Hospitalization)
  Sender: FDA-Public Use
  Company Number: BE-PFIZER INC-2020039239

PATIENT
  Weight: 1.2 kg

DRUGS (2)
  1. CARBOPLATIN. [Suspect]
     Active Substance: CARBOPLATIN
     Indication: GASTRIC CANCER STAGE IV
     Dosage: UNK, CYCLIC (3 CYCLES)
     Route: 064
  2. PACLITAXEL. [Suspect]
     Active Substance: PACLITAXEL
     Indication: GASTRIC CANCER STAGE IV
     Dosage: UNK, CYCLIC (3 CYCLES)
     Route: 064

REACTIONS (5)
  - Brain abscess [Recovered/Resolved with Sequelae]
  - Bacillus infection [Recovered/Resolved with Sequelae]
  - Maternal exposure during pregnancy [Unknown]
  - Premature baby [Unknown]
  - Foetal growth restriction [Unknown]
